FAERS Safety Report 23055384 (Version 1)
Quarter: 2023Q4

REPORT INFORMATION
  Report Type: Spontaneous
  Country: JP (occurrence: JP)
  Receive Date: 20231011
  Receipt Date: 20231011
  Transmission Date: 20240109
  Serious: Yes (Hospitalization, Other)
  Sender: FDA-Public Use
  Company Number: JP-BRISTOL-MYERS SQUIBB COMPANY-BMS-2016-094863

PATIENT
  Age: 79 Year
  Sex: Female
  Weight: 35 kg

DRUGS (10)
  1. OPDIVO [Suspect]
     Active Substance: NIVOLUMAB
     Indication: Non-small cell lung cancer recurrent
     Dosage: 3 MG/KG, UNK
     Route: 041
     Dates: start: 20160531, end: 20160927
  2. OPDIVO [Suspect]
     Active Substance: NIVOLUMAB
     Dosage: 3 ABSENT 3 ABSENT
     Route: 041
     Dates: start: 20180620
  3. OPDIVO [Suspect]
     Active Substance: NIVOLUMAB
     Dosage: 3 MG/KG, UNK
     Route: 041
     Dates: start: 20160614
  4. OPDIVO [Suspect]
     Active Substance: NIVOLUMAB
     Dosage: 3 MG/KG, UNK
     Route: 041
     Dates: start: 20160628
  5. OPDIVO [Suspect]
     Active Substance: NIVOLUMAB
     Dosage: 3 MG/KG, UNK
     Route: 041
     Dates: start: 20160712
  6. OPDIVO [Suspect]
     Active Substance: NIVOLUMAB
     Dosage: 3 MG/KG, UNK
     Route: 041
     Dates: start: 20160726
  7. OPDIVO [Suspect]
     Active Substance: NIVOLUMAB
     Dosage: 3 MG/KG, UNK
     Route: 041
     Dates: start: 20160809
  8. OPDIVO [Suspect]
     Active Substance: NIVOLUMAB
     Dosage: 3 MG/KG, UNK
     Route: 041
     Dates: start: 20160825
  9. OPDIVO [Suspect]
     Active Substance: NIVOLUMAB
     Dosage: 3 MG/KG, UNK
     Route: 041
     Dates: start: 20160913
  10. OPDIVO [Suspect]
     Active Substance: NIVOLUMAB
     Dosage: 3 MG/KG, UNK
     Route: 041
     Dates: start: 20160927

REACTIONS (12)
  - Malignant neoplasm progression [Unknown]
  - Pneumonitis [Recovering/Resolving]
  - Organising pneumonia [Unknown]
  - Fall [Unknown]
  - Dizziness [Unknown]
  - Chest discomfort [Unknown]
  - Tachycardia paroxysmal [Unknown]
  - Sinus node dysfunction [Unknown]
  - Bundle branch block right [Unknown]
  - Bundle branch block left [Unknown]
  - Dyspnoea exertional [Unknown]
  - Hypotension [Unknown]

NARRATIVE: CASE EVENT DATE: 20161001
